FAERS Safety Report 7894282-1 (Version None)
Quarter: 2011Q4

REPORT INFORMATION
  Report Type: 
  Country: None (occurrence: None)
  Receive Date: 20111104
  Receipt Date: 20111102
  Transmission Date: 20120403
  Serious: Yes (Hospitalization, Other)
  Sender: FDA-Public Use
  Company Number: DE-ROCHE-1009028

PATIENT
  Sex: Male
  Weight: 82.7 kg

DRUGS (4)
  1. FLUOROURACIL [Concomitant]
     Route: 040
     Dates: start: 20111012
  2. AVASTIN [Suspect]
     Indication: COLORECTAL CANCER METASTATIC
     Route: 042
     Dates: start: 20111012
  3. LEUCOVORIN CALCIUM [Concomitant]
     Indication: COLORECTAL CANCER METASTATIC
     Route: 042
     Dates: start: 20111012
  4. FLUOROURACIL [Concomitant]
     Indication: COLORECTAL CANCER METASTATIC
     Route: 042
     Dates: start: 20111012

REACTIONS (2)
  - DIZZINESS [None]
  - FALL [None]
